FAERS Safety Report 6198427-3 (Version None)
Quarter: 2009Q2

REPORT INFORMATION
  Report Type: 
  Country: None (occurrence: None)
  Receive Date: 20090518
  Receipt Date: 20090213
  Transmission Date: 20091009
  Serious: No
  Sender: FDA-Public Use
  Company Number: WAES 0902USA02430

PATIENT
  Age: 37 Year
  Sex: Male

DRUGS (3)
  1. ISENTRESS [Suspect]
     Indication: HIV INFECTION
     Dosage: 400 MG/BID/PO
     Route: 048
     Dates: start: 20081101, end: 20081231
  2. TRUVADA [Concomitant]
  3. WELLBUTRIN [Concomitant]

REACTIONS (3)
  - DEPRESSION [None]
  - MOOD SWINGS [None]
  - SENSORY LEVEL ABNORMAL [None]
